FAERS Safety Report 4311983-2 (Version None)
Quarter: 2004Q1

REPORT INFORMATION
  Report Type: 
  Country: None (occurrence: None)
  Receive Date: 20040305
  Receipt Date: 20030811
  Transmission Date: 20041129
  Serious: No
  Sender: FDA-Public Use
  Company Number: US-GLAXOSMITHKLINE-A0420600A

PATIENT
  Sex: Female

DRUGS (2)
  1. REQUIP [Suspect]
     Indication: PARKINSONISM
     Dosage: .25MG TWICE PER DAY
     Route: 048
  2. COENZYME Q10 [Concomitant]

REACTIONS (4)
  - INSOMNIA [None]
  - LETHARGY [None]
  - NAUSEA [None]
  - SOMNOLENCE [None]
